FAERS Safety Report 25565383 (Version 1)
Quarter: 2025Q3

REPORT INFORMATION
  Report Type: Spontaneous
  Country: EU (occurrence: EU)
  Receive Date: 20250716
  Receipt Date: 20250716
  Transmission Date: 20251020
  Serious: Yes (Hospitalization)
  Sender: BAUSCH AND LOMB
  Company Number: EU-BAUSCH-BH-2025-014655

PATIENT
  Age: 26 Year
  Sex: Male
  Weight: 98.6 kg

DRUGS (6)
  1. AZATHIOPRINE [Suspect]
     Active Substance: AZATHIOPRINE
     Indication: Crohn^s disease
     Route: 065
  2. AZATHIOPRINE [Suspect]
     Active Substance: AZATHIOPRINE
     Indication: Psoriatic arthropathy
     Route: 065
  3. MESALAMINE [Interacting]
     Active Substance: MESALAMINE
     Indication: Crohn^s disease
     Route: 065
  4. MESALAMINE [Interacting]
     Active Substance: MESALAMINE
     Indication: Psoriatic arthropathy
     Dosage: RESTARTED 5-ASA THERAPY AT A DOSE OF 1500 MG/DAY
     Route: 065
  5. PREDNISONE [Concomitant]
     Active Substance: PREDNISONE
     Indication: Crohn^s disease
  6. PREDNISONE [Concomitant]
     Active Substance: PREDNISONE
     Indication: Psoriatic arthropathy

REACTIONS (5)
  - Myelosuppression [Unknown]
  - Febrile neutropenia [Unknown]
  - Bone marrow failure [Recovered/Resolved]
  - Labelled drug-drug interaction issue [Unknown]
  - Therapy partial responder [Unknown]
